FAERS Safety Report 21550745 (Version 1)
Quarter: 2022Q4

REPORT INFORMATION
  Report Type: Spontaneous
  Country: US (occurrence: US)
  Receive Date: 20221103
  Receipt Date: 20221103
  Transmission Date: 20230112
  Serious: No
  Sender: FDA-Public Use
  Company Number: US-PERRIGO-22US001767

PATIENT
  Age: 90 Year
  Sex: Female
  Weight: 59.864 kg

DRUGS (1)
  1. FAMOTIDINE [Suspect]
     Active Substance: FAMOTIDINE
     Indication: Dyspepsia
     Dosage: 20 MG, SINGLE
     Route: 048
     Dates: start: 20220203, end: 20220203

REACTIONS (1)
  - Hunger [Recovered/Resolved]

NARRATIVE: CASE EVENT DATE: 20220203
